FAERS Safety Report 6797096-9 (Version None)
Quarter: 2010Q2

REPORT INFORMATION
  Report Type: 
  Country: None (occurrence: None)
  Receive Date: 20100623
  Receipt Date: 20100608
  Transmission Date: 20101027
  Serious: Yes (Hospitalization, Other)
  Sender: FDA-Public Use
  Company Number: 20100263

PATIENT
  Age: 56 Year
  Sex: Female

DRUGS (3)
  1. PAMIDRONATE DISODIUM [Suspect]
     Indication: OSTEOPOROSIS
     Dosage: 90 MG MONTHLY X2; INTRAVENOUS DRIP
     Route: 041
     Dates: start: 19991101, end: 20010101
  2. ZOLEDRONIC ACID [Suspect]
     Indication: OSTEOPOROSIS
     Dosage: 4 MG MONTHLY X4;
     Dates: start: 20020101, end: 20060401
  3. PREDNISONE [Concomitant]

REACTIONS (5)
  - ARTHRALGIA [None]
  - BLOOD CREATININE INCREASED [None]
  - CALLUS FORMATION DELAYED [None]
  - FEMUR FRACTURE [None]
  - FRACTURE NONUNION [None]
